FAERS Safety Report 12500940 (Version 1)
Quarter: 2016Q2

REPORT INFORMATION
  Report Type: Spontaneous
  Country: GB (occurrence: GB)
  Receive Date: 20160627
  Receipt Date: 20160627
  Transmission Date: 20160815
  Serious: Yes (Disabling, Other)
  Sender: FDA-Public Use
  Company Number: GB-ELI_LILLY_AND_COMPANY-GB201606008293

PATIENT
  Age: 30 Year
  Sex: Male
  Weight: 39 kg

DRUGS (2)
  1. OLANZAPINE. [Suspect]
     Active Substance: OLANZAPINE
     Indication: AGGRESSION
     Dosage: 10 MG, UNKNOWN
     Route: 048
     Dates: end: 201605
  2. MIRTAZAPINE. [Concomitant]
     Active Substance: MIRTAZAPINE
     Indication: PRODUCT USED FOR UNKNOWN INDICATION
     Dosage: UNK UNK, UNKNOWN
     Route: 065

REACTIONS (5)
  - General physical health deterioration [Unknown]
  - Vomiting [Recovering/Resolving]
  - Dehydration [Unknown]
  - Regurgitation [Recovering/Resolving]
  - Abnormal loss of weight [Recovering/Resolving]
